FAERS Safety Report 13188262 (Version 1)
Quarter: 2017Q1

REPORT INFORMATION
  Report Type: Spontaneous
  Country: US (occurrence: US)
  Receive Date: 20170205
  Receipt Date: 20170205
  Transmission Date: 20170428
  Serious: Yes (Other)
  Sender: FDA-Public Use
  Company Number: None

PATIENT
  Age: 26 Year
  Sex: Female

DRUGS (4)
  1. PRENATAL VITAMINS [Concomitant]
     Active Substance: VITAMINS
  2. UNISOME [Concomitant]
  3. PARAGARD T 380A [Suspect]
     Active Substance: COPPER
     Dates: start: 20140113, end: 20170119
  4. FOLIC ACID. [Concomitant]
     Active Substance: FOLIC ACID

REACTIONS (3)
  - Menstrual disorder [None]
  - Pregnancy with contraceptive device [None]
  - Uterine disorder [None]

NARRATIVE: CASE EVENT DATE: 20170119
